FAERS Safety Report 16458671 (Version 1)
Quarter: 2019Q2

REPORT INFORMATION
  Report Type: Spontaneous
  Country: US (occurrence: US)
  Receive Date: 20190620
  Receipt Date: 20190620
  Transmission Date: 20190711
  Serious: No
  Sender: FDA-Public Use
  Company Number: US-THERAPEUTICSMD-2019TMD00619

PATIENT
  Age: 63 Year
  Sex: Female
  Weight: 52.15 kg

DRUGS (12)
  1. IMVEXXY [Suspect]
     Active Substance: ESTRADIOL
     Indication: VULVOVAGINAL DRYNESS
     Dosage: 10 ?G, 1X/DAY AT BEDTIME
     Route: 067
     Dates: start: 201902, end: 2019
  2. PTEROSTILBENE [Concomitant]
  3. FRENCH MARITIME PINE BARK EXTRACT [Concomitant]
  4. MAQUI BERRY [Concomitant]
  5. ROSUVASTATIN CALCIUM. [Concomitant]
     Active Substance: ROSUVASTATIN CALCIUM
  6. TURMERIC [Concomitant]
     Active Substance: HERBALS\TURMERIC
  7. VITAMIN D [Concomitant]
     Active Substance: VITAMIN D NOS
  8. IMVEXXY [Suspect]
     Active Substance: ESTRADIOL
     Dosage: 10 ?G, 2X/WEEK AT BEDTIME
     Route: 067
     Dates: start: 2019, end: 201903
  9. IMVEXXY [Suspect]
     Active Substance: ESTRADIOL
     Indication: VULVOVAGINAL DRYNESS
     Dosage: 4 ?G, 2X/WEEK AT BEDTIME
     Route: 067
     Dates: start: 201903
  10. CO Q 10 AND VITAMIN K2 [Concomitant]
  11. MAGNESIUM [Concomitant]
     Active Substance: MAGNESIUM
  12. L-CARNOSINE [Concomitant]
     Active Substance: CARNOSINE

REACTIONS (2)
  - Uterine spasm [Recovered/Resolved]
  - Off label use [Not Recovered/Not Resolved]

NARRATIVE: CASE EVENT DATE: 201902
